FAERS Safety Report 8090428-3 (Version None)
Quarter: 2012Q1

REPORT INFORMATION
  Report Type: 
  Country: None (occurrence: None)
  Receive Date: 20120129
  Receipt Date: 20111121
  Transmission Date: 20120608
  Serious: No
  Sender: FDA-Public Use
  Company Number: US-ABBOTT-11P-163-0876024-00

PATIENT
  Sex: Female
  Weight: 61.29 kg

DRUGS (6)
  1. GABAPENTIN [Concomitant]
     Indication: PRODUCT USED FOR UNKNOWN INDICATION
  2. LIPITOR [Concomitant]
     Indication: BLOOD CHOLESTEROL INCREASED
  3. HUMIRA [Suspect]
     Indication: RHEUMATOID ARTHRITIS
     Dates: start: 20110801
  4. CYMBALTA [Concomitant]
     Indication: PAIN
  5. MELOXICAM [Concomitant]
     Indication: RHEUMATOID ARTHRITIS
  6. PROTONIX [Concomitant]
     Indication: GASTRIC DISORDER

REACTIONS (1)
  - SINUSITIS [None]
